FAERS Safety Report 4953258-4 (Version None)
Quarter: 2006Q1

REPORT INFORMATION
  Report Type: 
  Country: None (occurrence: None)
  Receive Date: 20060324
  Receipt Date: 20060322
  Transmission Date: 20060701
  Serious: Yes (Hospitalization)
  Sender: FDA-Public Use
  Company Number: US-MERCK-0603USA03473

PATIENT
  Sex: Female

DRUGS (1)
  1. IVOMEC [Suspect]
     Indication: DRUG ADMINISTRATION ERROR
     Route: 048
     Dates: start: 20060321, end: 20060321

REACTIONS (3)
  - ACCIDENTAL EXPOSURE [None]
  - INTENTIONAL DRUG MISUSE [None]
  - NO ADVERSE EFFECT [None]
